FAERS Safety Report 21036612 (Version 2)
Quarter: 2022Q3

REPORT INFORMATION
  Report Type: Spontaneous
  Country: US (occurrence: US)
  Receive Date: 20220702
  Receipt Date: 20220716
  Transmission Date: 20221027
  Serious: Yes (Other)
  Sender: FDA-Public Use
  Company Number: US-MLMSERVICE-20220614-3613392-1

PATIENT
  Age: 6 Decade
  Sex: Male

DRUGS (5)
  1. SULFAMETHOXAZOLE\TRIMETHOPRIM [Suspect]
     Active Substance: SULFAMETHOXAZOLE\TRIMETHOPRIM
     Indication: Antifungal prophylaxis
     Dosage: UNK
     Route: 065
  2. SULFAMETHOXAZOLE\TRIMETHOPRIM [Suspect]
     Active Substance: SULFAMETHOXAZOLE\TRIMETHOPRIM
     Indication: Follicular lymphoma
  3. DUVELISIB [Suspect]
     Active Substance: DUVELISIB
     Indication: Follicular lymphoma
     Dosage: UNK
     Route: 065
  4. DUVELISIB [Suspect]
     Active Substance: DUVELISIB
     Indication: Neoplasm progression
  5. OXYCODONE [Concomitant]
     Active Substance: OXYCODONE
     Indication: Product used for unknown indication
     Dosage: UNK
     Route: 065

REACTIONS (1)
  - Guttate psoriasis [Recovered/Resolved]
